FAERS Safety Report 9626702 (Version 3)
Quarter: 2013Q4

REPORT INFORMATION
  Report Type: Report from Study
  Country: BR (occurrence: BR)
  Receive Date: 20131016
  Receipt Date: 20131028
  Transmission Date: 20140711
  Serious: Yes (Hospitalization, Other)
  Sender: FDA-Public Use
  Company Number: BR-ABBVIE-13P-020-1138801-00

PATIENT
  Age: 29 Year
  Sex: Male
  Weight: 84 kg

DRUGS (1)
  1. HUMIRA [Suspect]
     Indication: ANKYLOSING SPONDYLITIS
     Route: 058

REACTIONS (9)
  - Renal failure [Not Recovered/Not Resolved]
  - Renal disorder [Unknown]
  - Pain [Unknown]
  - Urethritis noninfective [Unknown]
  - Urethral obstruction [Unknown]
  - Calculus urethral [Unknown]
  - Free fatty acids [Unknown]
  - Renal impairment [Unknown]
  - Nephrolithiasis [Not Recovered/Not Resolved]
